FAERS Safety Report 15976981 (Version 2)
Quarter: 2019Q2

REPORT INFORMATION
  Report Type: Spontaneous
  Country: US (occurrence: US)
  Receive Date: 20190218
  Receipt Date: 20190415
  Transmission Date: 20190711
  Serious: No
  Sender: FDA-Public Use
  Company Number: US-PFIZER INC-2019014519

PATIENT
  Age: 41 Year
  Sex: Male

DRUGS (4)
  1. LYRICA [Suspect]
     Active Substance: PREGABALIN
     Dosage: 200 MG, DAILY
  2. LYRICA [Suspect]
     Active Substance: PREGABALIN
     Dosage: 250 MG, DAILY (100 MG IN THE MORNING AND 150 MG AT NIGHT)
     Dates: start: 201810
  3. LYRICA [Suspect]
     Active Substance: PREGABALIN
     Indication: FIBROMYALGIA
     Dosage: 300 MG, DAILY
  4. LEVOTHYROXINE [LEVOTHYROXINE SODIUM] [Concomitant]
     Dosage: 0.025 MG, UNK
     Dates: start: 201811

REACTIONS (7)
  - Sleep disorder [Unknown]
  - Libido decreased [Unknown]
  - Headache [Unknown]
  - Disturbance in attention [Not Recovered/Not Resolved]
  - Memory impairment [Not Recovered/Not Resolved]
  - Feeling abnormal [Unknown]
  - Abulia [Not Recovered/Not Resolved]

NARRATIVE: CASE EVENT DATE: 201808
